FAERS Safety Report 19934341 (Version 2)
Quarter: 2021Q4

REPORT INFORMATION
  Report Type: Spontaneous
  Country: CO (occurrence: CO)
  Receive Date: 20211008
  Receipt Date: 20211011
  Transmission Date: 20220304
  Serious: Yes (Other)
  Sender: FDA-Public Use
  Company Number: CO-BAXTER-2021BAX031323

PATIENT
  Age: 62 Year
  Sex: Male
  Weight: 63.2 kg

DRUGS (2)
  1. DIANEAL PD-2 WITH DEXTROSE [Suspect]
     Active Substance: CALCIUM CHLORIDE\DEXTROSE\MAGNESIUM CHLORIDE\SODIUM CHLORIDE\SODIUM LACTATE
     Indication: Peritoneal dialysis
     Dosage: 4 BAGS
     Route: 033
     Dates: start: 202003, end: 202109
  2. DIANEAL PD-2 WITH DEXTROSE [Suspect]
     Active Substance: CALCIUM CHLORIDE\DEXTROSE\MAGNESIUM CHLORIDE\SODIUM CHLORIDE\SODIUM LACTATE
     Dosage: 5 BAGS
     Route: 033
     Dates: start: 202109

REACTIONS (2)
  - Azotaemia [Recovered/Resolved]
  - Inadequate peritoneal dialysis [Recovered/Resolved]
